FAERS Safety Report 5285311-2 (Version None)
Quarter: 2007Q2

REPORT INFORMATION
  Report Type: 
  Country: None (occurrence: None)
  Receive Date: 20070403
  Receipt Date: 20070326
  Transmission Date: 20071010
  Serious: Yes (Death)
  Sender: FDA-Public Use
  Company Number: US-BOEHRINGER INGELHEIM GMBH, GERMANY-2007-DE-01801GD

PATIENT
  Age: 41 Year
  Sex: Female

DRUGS (5)
  1. ACETAMINOPHEN [Suspect]
  2. CODEINE [Suspect]
  3. QUETIAPINE FUMARATE [Suspect]
  4. CARBAMAZEPINE [Suspect]
  5. VENLAFAXINE HCL [Suspect]

REACTIONS (3)
  - DRUG ABUSER [None]
  - DRUG TOXICITY [None]
  - SUICIDE ATTEMPT [None]
